FAERS Safety Report 15882067 (Version 2)
Quarter: 2019Q1

REPORT INFORMATION
  Report Type: Report from Study
  Country: US (occurrence: US)
  Receive Date: 20190128
  Receipt Date: 20190313
  Transmission Date: 20190417
  Serious: Yes (Hospitalization, Other)
  Sender: FDA-Public Use
  Company Number: US-ACTELION-A-NJ2019-185373

PATIENT
  Age: 26 Year
  Sex: Female
  Weight: 56.7 kg

DRUGS (4)
  1. VELETRI [Suspect]
     Active Substance: EPOPROSTENOL
     Indication: PULMONARY ARTERIAL HYPERTENSION
     Dosage: 31.1 NG/KG, PER MIN
     Route: 042
     Dates: start: 20181101
  2. RIOCIGUAT. [Concomitant]
     Active Substance: RIOCIGUAT
     Dosage: UNK
     Dates: start: 20181205
  3. LETAIRIS [Concomitant]
     Active Substance: AMBRISENTAN
     Dosage: UNK
     Dates: start: 20181205
  4. VELETRI [Suspect]
     Active Substance: EPOPROSTENOL
     Dosage: 5 UNK
     Route: 042
     Dates: start: 20180117

REACTIONS (9)
  - Abortion incomplete [Recovered/Resolved]
  - Uterine dilation and curettage [Unknown]
  - Coagulopathy [Unknown]
  - Post abortion haemorrhage [Unknown]
  - Transfusion [Unknown]
  - Anaemia [Unknown]
  - White blood cell count increased [Unknown]
  - Exposure during pregnancy [Unknown]
  - Abortion spontaneous [Unknown]

NARRATIVE: CASE EVENT DATE: 20190103
